FAERS Safety Report 8549147-9 (Version None)
Quarter: 2012Q3

REPORT INFORMATION
  Report Type: 
  Country: None (occurrence: None)
  Receive Date: 20120730
  Receipt Date: 20120725
  Transmission Date: 20120928
  Serious: Yes (Death)
  Sender: FDA-Public Use
  Company Number: BR-PFIZER INC-2012025983

PATIENT
  Age: 51 Year
  Sex: Male
  Weight: 74 kg

DRUGS (9)
  1. MORPHINE [Concomitant]
     Dosage: 30 MG, EVERY 4 HRS
  2. HYDROMORPHONE HCL [Concomitant]
     Dosage: 160 MG, 1X/DAY
  3. METOCLOPRAMIDE HYDROCHLORIDE [Concomitant]
     Dosage: UNKNOWN DOSE, 3X/DAY
  4. SUTENT [Suspect]
     Indication: RENAL CANCER
  5. AEROCORT [Concomitant]
     Dosage: UNKNOWN DOSE, ALTERNATE DAYS
  6. ZOMETA [Concomitant]
     Dosage: UNK
  7. SUTENT [Suspect]
     Indication: METASTATIC RENAL CELL CARCINOMA
     Dosage: 50 MG, 1X/DAY (CYCLE 4 FOR 2)
     Route: 048
     Dates: start: 20120123
  8. OMEPRAZOLE [Concomitant]
     Dosage: 40 MG, 1X/DAY
  9. ASPIRIN [Concomitant]
     Dosage: UNKNOWN DOSE, 1X/DAY

REACTIONS (10)
  - DRY SKIN [None]
  - SKIN EXFOLIATION [None]
  - DEATH [None]
  - FATIGUE [None]
  - RASH MACULAR [None]
  - NAUSEA [None]
  - CHAPPED LIPS [None]
  - BLISTER [None]
  - VOMITING [None]
  - APHTHOUS STOMATITIS [None]
